FAERS Safety Report 8476771-4 (Version None)
Quarter: 2012Q2

REPORT INFORMATION
  Report Type: 
  Country: None (occurrence: None)
  Receive Date: 20120628
  Receipt Date: 20120622
  Transmission Date: 20120825
  Serious: Yes (Hospitalization, Disabling)
  Sender: FDA-Public Use
  Company Number: US-MERCK-1202USA03902

PATIENT
  Age: 62 Year
  Sex: Female
  Weight: 107 kg

DRUGS (12)
  1. BONIVA [Concomitant]
     Indication: OSTEOPOROSIS
     Route: 065
     Dates: start: 19990401, end: 20100101
  2. ANTIVERT (MECLIZINE HYDROCHLORIDE) [Concomitant]
     Route: 065
  3. TENORMIN [Concomitant]
     Route: 065
  4. KLONOPIN [Concomitant]
     Route: 065
  5. FOSAMAX [Suspect]
     Route: 048
     Dates: start: 19990701, end: 20010301
  6. PRINZIDE [Concomitant]
     Route: 065
  7. XANAX [Concomitant]
     Route: 065
  8. VANCENASE [Concomitant]
     Route: 065
  9. FOSAMAX [Suspect]
     Indication: OSTEOPOROSIS
     Route: 048
     Dates: start: 20010301, end: 20100101
  10. ATENOLOL [Concomitant]
     Indication: HYPERTENSION
     Route: 065
  11. ZOLOFT [Concomitant]
     Route: 065
  12. HYDROCHLOROTHIAZIDE [Concomitant]
     Route: 065

REACTIONS (33)
  - MUSCLE SPASMS [None]
  - BURSITIS [None]
  - JAW DISORDER [None]
  - BACK PAIN [None]
  - WEIGHT INCREASED [None]
  - DIABETIC NEPHROPATHY [None]
  - DRUG HYPERSENSITIVITY [None]
  - BRONCHITIS [None]
  - TYPE 2 DIABETES MELLITUS [None]
  - TYMPANIC MEMBRANE DISORDER [None]
  - TREATMENT NONCOMPLIANCE [None]
  - TACHYCARDIA [None]
  - ARTERIOSCLEROSIS [None]
  - PERIPHERAL VASCULAR DISORDER [None]
  - THROMBOSIS [None]
  - EPICONDYLITIS [None]
  - EYE DISORDER [None]
  - OSTEONECROSIS OF JAW [None]
  - SINUSITIS [None]
  - OSTEOARTHRITIS [None]
  - TOOTH DISORDER [None]
  - DIABETIC NEUROPATHY [None]
  - RECTAL HAEMORRHAGE [None]
  - CERVICOBRACHIAL SYNDROME [None]
  - BONE DISORDER [None]
  - BLADDER DISORDER [None]
  - CELLULITIS [None]
  - MYOCLONUS [None]
  - IRRITABLE BOWEL SYNDROME [None]
  - URGE INCONTINENCE [None]
  - SUPRAVENTRICULAR TACHYCARDIA [None]
  - URINARY TRACT INFECTION [None]
  - DIABETES MELLITUS INADEQUATE CONTROL [None]
